FAERS Safety Report 16808307 (Version 1)
Quarter: 2019Q3

REPORT INFORMATION
  Report Type: Spontaneous
  Country: SE (occurrence: SE)
  Receive Date: 20190916
  Receipt Date: 20190916
  Transmission Date: 20191005
  Serious: Yes (Hospitalization)
  Sender: FDA-Public Use
  Company Number: SE-TEVA-2019-SE-1106424

PATIENT
  Age: 20 Year
  Sex: Female

DRUGS (5)
  1. MIRTAZAPINE. [Suspect]
     Active Substance: MIRTAZAPINE
     Route: 048
     Dates: start: 20190524, end: 20190524
  2. ATARAX [Suspect]
     Active Substance: HYDROXYZINE HYDROCHLORIDE
     Route: 048
     Dates: start: 20190524, end: 20190524
  3. OXASCAND [Suspect]
     Active Substance: OXAZEPAM
     Route: 048
     Dates: start: 20190524, end: 20190524
  4. LERGIGAN (PROMETHAZINE HYDROCHLORIDE) [Suspect]
     Active Substance: PROMETHAZINE HYDROCHLORIDE
     Route: 048
     Dates: start: 20190524, end: 20190524
  5. MELATONIN [Suspect]
     Active Substance: MELATONIN
     Route: 048
     Dates: start: 20190524, end: 20190524

REACTIONS (3)
  - Depressed level of consciousness [Unknown]
  - Intentional overdose [Unknown]
  - Intentional self-injury [Unknown]

NARRATIVE: CASE EVENT DATE: 201905
